FAERS Safety Report 12181775 (Version 2)
Quarter: 2016Q2

REPORT INFORMATION
  Report Type: Spontaneous
  Country: RO (occurrence: RO)
  Receive Date: 20160315
  Receipt Date: 20160513
  Transmission Date: 20160815
  Serious: Yes (Hospitalization, Other)
  Sender: FDA-Public Use
  Company Number: RO-TAKEDA-2016MPI000937

PATIENT
  Age: 70 Year
  Sex: Female
  Weight: 78 kg

DRUGS (76)
  1. VELCADE [Suspect]
     Active Substance: BORTEZOMIB
     Dosage: 2.3 MG, QD
     Route: 058
     Dates: start: 20151016
  2. VELCADE [Suspect]
     Active Substance: BORTEZOMIB
     Dosage: 2.34 MG, QD
     Route: 058
     Dates: start: 20151124
  3. VELCADE [Suspect]
     Active Substance: BORTEZOMIB
     Dosage: 2.32 MG, QD
     Route: 058
     Dates: start: 20160301
  4. PREDNISONE. [Suspect]
     Active Substance: PREDNISONE
     Dosage: 110 UNK, UNK
     Route: 048
     Dates: start: 20160119, end: 20160122
  5. PREDNISONE. [Suspect]
     Active Substance: PREDNISONE
     Dosage: 110 MG, UNK
     Route: 048
     Dates: start: 20160301, end: 20160304
  6. ACICLOVIR [Concomitant]
     Active Substance: ACYCLOVIR
     Indication: PROPHYLAXIS
     Dosage: 200 MG, BID
     Route: 048
     Dates: start: 20150915
  7. ASPENTER [Concomitant]
     Active Substance: ASPIRIN
     Indication: MYOCARDIAL ISCHAEMIA
     Dosage: 75 MG, UNK
     Route: 048
     Dates: start: 201503
  8. DOMPERIDONA [Concomitant]
     Indication: DUODENAL ULCER
     Dosage: UNK
     Route: 065
  9. TAZOCEL [Concomitant]
     Active Substance: PIPERACILLIN SODIUM\TAZOBACTAM SODIUM
     Indication: ILEUS PARALYTIC
     Dosage: UNK
     Route: 065
  10. METRONIDAZOLE. [Concomitant]
     Active Substance: METRONIDAZOLE
     Indication: INFECTIVE MYOSITIS
     Dosage: UNK
     Route: 065
  11. FORTASEC                           /00384301/ [Concomitant]
     Indication: DIARRHOEA
     Dosage: UNK
     Route: 065
  12. VELCADE [Suspect]
     Active Substance: BORTEZOMIB
     Dosage: 2.3 MG, QD
     Route: 058
     Dates: start: 20150915
  13. VELCADE [Suspect]
     Active Substance: BORTEZOMIB
     Dosage: 2.3 MG, QD
     Route: 058
     Dates: start: 20150922
  14. VELCADE [Suspect]
     Active Substance: BORTEZOMIB
     Dosage: 2.32 MG, UNK
     Route: 058
     Dates: start: 20160322
  15. EXFORGE [Concomitant]
     Active Substance: AMLODIPINE BESYLATE\VALSARTAN
     Indication: HYPERTENSION
     Dosage: 75 MG, QD
     Route: 048
     Dates: start: 201504
  16. LACTULOSE. [Concomitant]
     Active Substance: LACTULOSE
     Indication: CONSTIPATION
     Dosage: UNK
     Route: 065
  17. IBUPROFENO [Concomitant]
     Active Substance: IBUPROFEN
     Indication: FEMUR FRACTURE
     Dosage: UNK
     Route: 065
  18. DEXAMETHASONE. [Concomitant]
     Active Substance: DEXAMETHASONE
     Dosage: UNK
     Route: 065
  19. CIDIN [Concomitant]
     Indication: VOMITING
     Dosage: UNK
     Route: 065
  20. VELCADE [Suspect]
     Active Substance: BORTEZOMIB
     Dosage: 2.32 MG, QD
     Route: 058
     Dates: start: 20160126
  21. VELCADE [Suspect]
     Active Substance: BORTEZOMIB
     Dosage: 2.32 MG, QD
     Route: 058
     Dates: start: 20160216
  22. MILURIT [Concomitant]
     Active Substance: ALLOPURINOL
     Indication: GOUT
     Dosage: 300 MG, QD
     Route: 048
     Dates: start: 201504
  23. TRAMADOL. [Concomitant]
     Active Substance: TRAMADOL
     Indication: PROPHYLAXIS
     Dosage: 100 MG, UNK
     Route: 048
     Dates: start: 20151016, end: 20151102
  24. ALPRAZOLAM. [Concomitant]
     Active Substance: ALPRAZOLAM
     Indication: ANXIETY
     Dosage: UNK
     Route: 065
  25. CLEXANE [Concomitant]
     Active Substance: ENOXAPARIN SODIUM
     Indication: PROPHYLAXIS
     Dosage: UNK
     Route: 065
  26. SIMVASTATINA [Concomitant]
     Active Substance: SIMVASTATIN
     Indication: DYSLIPIDAEMIA
     Dosage: UNK
     Route: 065
  27. FLUCONAZOL [Concomitant]
     Active Substance: FLUCONAZOLE
     Indication: INFECTIVE MYOSITIS
     Dosage: UNK
     Route: 065
  28. VELCADE [Suspect]
     Active Substance: BORTEZOMIB
     Dosage: 2.3 MG, QD
     Route: 058
     Dates: start: 20160105
  29. VELCADE [Suspect]
     Active Substance: BORTEZOMIB
     Dosage: 2.32 MG, QD
     Route: 058
     Dates: start: 20160308
  30. PREDNISONE. [Suspect]
     Active Substance: PREDNISONE
     Indication: PLASMA CELL MYELOMA
     Dosage: 100 MG, UNK
     Route: 048
     Dates: start: 20150620, end: 20150622
  31. PREDNISONE. [Suspect]
     Active Substance: PREDNISONE
     Dosage: 110 MG, QD
     Route: 048
     Dates: start: 20151027, end: 20151030
  32. MELPHALAN [Suspect]
     Active Substance: MELPHALAN
     Dosage: 16 MG, UNK
     Route: 048
     Dates: start: 20160301, end: 20160304
  33. DUROGESIC [Concomitant]
     Active Substance: FENTANYL
     Indication: FEMUR FRACTURE
     Dosage: UNK
     Route: 065
  34. VELCADE [Suspect]
     Active Substance: BORTEZOMIB
     Dosage: 2.32 MG, QD
     Route: 058
     Dates: start: 20151117
  35. VELCADE [Suspect]
     Active Substance: BORTEZOMIB
     Dosage: 2.3 MG, QD
     Route: 058
     Dates: start: 20151229
  36. VELCADE [Suspect]
     Active Substance: BORTEZOMIB
     Dosage: 2.32 MG, UNK
     Route: 058
     Dates: start: 20160412
  37. PREDNISONE. [Suspect]
     Active Substance: PREDNISONE
     Dosage: 110 MG, QD
     Route: 048
     Dates: start: 20151210, end: 20151217
  38. PLAVIX [Concomitant]
     Active Substance: CLOPIDOGREL BISULFATE
     Indication: HYPERTENSION
     Dosage: 75 MG, QD
     Route: 048
     Dates: start: 201504
  39. PRESTARIUM [Concomitant]
     Active Substance: PERINDOPRIL
     Indication: HYPERTENSION
     Dosage: 5 MG, UNK
     Route: 048
     Dates: start: 201504
  40. PARACETAMOL [Concomitant]
     Active Substance: ACETAMINOPHEN
     Indication: PATHOLOGICAL FRACTURE
     Dosage: UNK
     Route: 065
  41. DAPTOMICINA [Concomitant]
     Indication: INFECTIVE MYOSITIS
     Dosage: UNK
     Route: 065
  42. DAPTOMICINA [Concomitant]
     Indication: CELLULITIS
     Dosage: UNK
     Route: 065
  43. ALMAGATE [Concomitant]
     Active Substance: ALMAGATE
     Indication: ABDOMINAL PAIN UPPER
     Dosage: UNK
     Route: 065
  44. ORFIDAL [Concomitant]
     Active Substance: LORAZEPAM
     Indication: ANXIETY
     Dosage: UNK
     Route: 065
  45. VELCADE [Suspect]
     Active Substance: BORTEZOMIB
     Dosage: 2.3 MG, QD
     Route: 058
     Dates: start: 20150918
  46. VELCADE [Suspect]
     Active Substance: BORTEZOMIB
     Dosage: 2.3 MG, QD
     Route: 058
     Dates: start: 20151027
  47. VELCADE [Suspect]
     Active Substance: BORTEZOMIB
     Dosage: 2.3 MG, QD
     Route: 058
     Dates: start: 20151103
  48. VELCADE [Suspect]
     Active Substance: BORTEZOMIB
     Dosage: 2.3 MG, QD
     Route: 058
     Dates: start: 20151217
  49. VELCADE [Suspect]
     Active Substance: BORTEZOMIB
     Dosage: 2.32 MG, QD
     Route: 058
     Dates: start: 20160119
  50. PREDNISONE. [Suspect]
     Active Substance: PREDNISONE
     Dosage: 110 MG, QD
     Route: 048
     Dates: start: 20150915, end: 20150918
  51. DARATUMUMAB [Suspect]
     Active Substance: DARATUMUMAB
     Indication: PLASMA CELL MYELOMA
     Dosage: UNK
     Route: 042
     Dates: start: 20150619, end: 20150619
  52. MELPHALAN [Suspect]
     Active Substance: MELPHALAN
     Dosage: 16 MG, UNK
     Route: 048
     Dates: start: 20160119, end: 20160122
  53. LANSOPRAZOLE. [Concomitant]
     Active Substance: LANSOPRAZOLE
     Indication: PROPHYLAXIS
     Dosage: 15 MG, BID
     Route: 048
     Dates: start: 20150915
  54. OMEPRAZOLE. [Concomitant]
     Active Substance: OMEPRAZOLE
     Indication: PROPHYLAXIS
     Dosage: UNK
     Route: 065
  55. ZOLPIDEM [Concomitant]
     Active Substance: ZOLPIDEM\ZOLPIDEM TARTRATE
     Indication: ANXIETY
     Dosage: UNK
     Route: 065
  56. ATORVASTATIN [Concomitant]
     Active Substance: ATORVASTATIN
     Indication: DYSLIPIDAEMIA
     Dosage: UNK
     Route: 065
  57. ERITROMICIN                        /00020901/ [Concomitant]
     Indication: ILEUS PARALYTIC
     Dosage: UNK
     Route: 065
  58. CIPROFLOXACIN. [Concomitant]
     Active Substance: CIPROFLOXACIN
     Indication: URINARY TRACT INFECTION
     Dosage: UNK
     Route: 065
  59. ZOFRAN [Concomitant]
     Active Substance: ONDANSETRON HYDROCHLORIDE
     Indication: VOMITING
     Dosage: UNK
     Route: 065
  60. VELCADE [Suspect]
     Active Substance: BORTEZOMIB
     Dosage: 2.3 MG, QD
     Route: 058
     Dates: start: 20151006
  61. VELCADE [Suspect]
     Active Substance: BORTEZOMIB
     Dosage: 2.32 MG, QD
     Route: 058
     Dates: start: 20151009
  62. VELCADE [Suspect]
     Active Substance: BORTEZOMIB
     Dosage: 2.3 MG, QD
     Route: 058
     Dates: start: 20151013
  63. VELCADE [Suspect]
     Active Substance: BORTEZOMIB
     Dosage: 2.32 MG, QD
     Route: 058
     Dates: start: 20160209
  64. MELPHALAN [Suspect]
     Active Substance: MELPHALAN
     Indication: PLASMA CELL MYELOMA
     Dosage: 16 MG, UNK
     Route: 048
     Dates: start: 20150619, end: 20150622
  65. MELPHALAN [Suspect]
     Active Substance: MELPHALAN
     Dosage: 16 MG, QD
     Route: 048
     Dates: start: 20150915, end: 20150918
  66. FOLIC ACID. [Concomitant]
     Active Substance: FOLIC ACID
     Indication: PRODUCT USED FOR UNKNOWN INDICATION
     Dosage: 5 MG, TID
     Route: 065
  67. AUGMENTIN [Concomitant]
     Active Substance: AMOXICILLIN\CLAVULANATE POTASSIUM
     Indication: INFECTIVE MYOSITIS
     Dosage: UNK
     Route: 065
  68. VELCADE [Suspect]
     Active Substance: BORTEZOMIB
     Indication: PLASMA CELL MYELOMA
     Dosage: 2.2 MG, QD
     Route: 058
     Dates: start: 20150619
  69. VELCADE [Suspect]
     Active Substance: BORTEZOMIB
     Dosage: 2.3 MG, QD
     Route: 058
     Dates: start: 20150925
  70. VELCADE [Suspect]
     Active Substance: BORTEZOMIB
     Dosage: 2.3 MG, QD
     Route: 058
     Dates: start: 20151210
  71. VELCADE [Suspect]
     Active Substance: BORTEZOMIB
     Dosage: 2.323 MG, UNK
     Route: 058
     Dates: start: 20160329
  72. CONCOR [Concomitant]
     Active Substance: BISOPROLOL FUMARATE
     Indication: HYPERTENSION
     Dosage: 5 MG, QD
     Route: 048
     Dates: start: 201504
  73. SORTIS [Concomitant]
     Active Substance: ATORVASTATIN
     Indication: OBESITY
     Dosage: 20 MG, QD
     Route: 048
     Dates: start: 201504
  74. VALACICLOVIR [Concomitant]
     Active Substance: VALACYCLOVIR HYDROCHLORIDE
     Indication: PRODUCT USED FOR UNKNOWN INDICATION
     Dosage: 500 MG, QD
     Route: 065
  75. LOSARTAN. [Concomitant]
     Active Substance: LOSARTAN
     Indication: HYPERTENSION
     Dosage: UNK
     Route: 065
  76. NIVESTIM [Concomitant]
     Active Substance: FILGRASTIM
     Indication: NEUTROPENIA
     Dosage: UNK
     Route: 065

REACTIONS (8)
  - Herpes zoster [Unknown]
  - Vomiting [Unknown]
  - Infective myositis [Unknown]
  - Ileus paralytic [Unknown]
  - Urinary tract infection [Unknown]
  - Anaemia [Recovered/Resolved]
  - Diarrhoea [Unknown]
  - Neutropenia [Unknown]

NARRATIVE: CASE EVENT DATE: 20150629
